FAERS Safety Report 20526870 (Version 2)
Quarter: 2022Q1

REPORT INFORMATION
  Report Type: Report from Study
  Country: IT (occurrence: IT)
  Receive Date: 20220228
  Receipt Date: 20220318
  Transmission Date: 20220423
  Serious: Yes (Death)
  Sender: FDA-Public Use
  Company Number: IT-DAIICHI SANKYO (CHINA) HOLDINGS CO., LTD.-DSU-2022-103407

PATIENT
  Age: 47 Year
  Sex: Female
  Weight: 38.5 kg

DRUGS (7)
  1. ENHERTU [Suspect]
     Active Substance: FAM-TRASTUZUMAB DERUXTECAN-NXKI
     Indication: HER2 positive breast cancer
     Dosage: 5.4 MG/KG, ONCE EVERY 3 WK
     Route: 042
     Dates: start: 20211115, end: 20211222
  2. PANTOPRAZOLE [Concomitant]
     Active Substance: PANTOPRAZOLE
     Indication: Gastritis prophylaxis
     Dosage: 40 MG, QD (1 CP)
     Route: 048
     Dates: start: 2019
  3. POTASSIUM [Concomitant]
     Active Substance: POTASSIUM
     Indication: Hypokalaemia
     Dosage: 600 MG, QD (4 CP)
     Route: 048
     Dates: start: 2021
  4. PREGABALIN [Concomitant]
     Active Substance: PREGABALIN
     Indication: Neuralgia
     Dosage: 50 MG, QD (1 CP)
     Route: 048
     Dates: start: 2019
  5. DEXAMETHASONE [Concomitant]
     Active Substance: DEXAMETHASONE
     Indication: Metastases to central nervous system
     Dosage: 4 MG, BID (1 CP)
     Route: 048
     Dates: start: 2020
  6. CALCIUM [Concomitant]
     Active Substance: CALCIUM
     Indication: Hypocalcaemia
     Dosage: 1000 MG, QD
     Route: 048
     Dates: start: 2019
  7. TRIPTORELIN [Concomitant]
     Active Substance: TRIPTORELIN
     Indication: Ovarian disorder
     Dosage: 375 MG, ONCE EVERY 1 MO
     Route: 048

REACTIONS (1)
  - Septic shock [Fatal]

NARRATIVE: CASE EVENT DATE: 20211230
